FAERS Safety Report 7525922-4 (Version None)
Quarter: 2011Q2

REPORT INFORMATION
  Report Type: 
  Country: None (occurrence: None)
  Receive Date: 20110606
  Receipt Date: 20110527
  Transmission Date: 20111010
  Serious: Yes (Other)
  Sender: FDA-Public Use
  Company Number: B0724289A

PATIENT
  Sex: Male

DRUGS (3)
  1. ALKERAN [Suspect]
     Dosage: 8MG PER DAY
     Route: 048
     Dates: start: 20101229, end: 20110205
  2. PREDNISONE [Concomitant]
     Dates: start: 20110202, end: 20110205
  3. VELCADE [Suspect]
     Route: 042
     Dates: start: 20101229, end: 20110223

REACTIONS (3)
  - C-REACTIVE PROTEIN INCREASED [None]
  - FEBRILE NEUTROPENIA [None]
  - PYREXIA [None]
